FAERS Safety Report 21955017 (Version 1)
Quarter: 2023Q1

REPORT INFORMATION
  Report Type: Spontaneous
  Country: US (occurrence: US)
  Receive Date: 20230206
  Receipt Date: 20230206
  Transmission Date: 20230418
  Serious: No
  Sender: FDA-Public Use
  Company Number: US-BEIGENE USA INC-BGN-2023-000743

PATIENT

DRUGS (10)
  1. BRUKINSA [Suspect]
     Active Substance: ZANUBRUTINIB
     Indication: Chronic lymphocytic leukaemia
  2. VITAMIN D3 [Concomitant]
     Active Substance: CHOLECALCIFEROL
  3. JARDIANCE [Concomitant]
     Active Substance: EMPAGLIFLOZIN
  4. ZETIA [Concomitant]
     Active Substance: EZETIMIBE
  5. ALLOPURINOL [Concomitant]
     Active Substance: ALLOPURINOL
  6. ISOSORBIDE [Concomitant]
     Active Substance: ISOSORBIDE
  7. LOSARTAN [Concomitant]
     Active Substance: LOSARTAN
  8. LEVOTHYROXINE [Concomitant]
     Active Substance: LEVOTHYROXINE
  9. ROSUVASTATIN [Concomitant]
     Active Substance: ROSUVASTATIN
  10. ACETAMINOPHEN [Concomitant]
     Active Substance: ACETAMINOPHEN

REACTIONS (1)
  - Contusion [Unknown]
